FAERS Safety Report 20807425 (Version 6)
Quarter: 2023Q2

REPORT INFORMATION
  Report Type: Other
  Country: JP (occurrence: JP)
  Receive Date: 20220510
  Receipt Date: 20230412
  Transmission Date: 20230722
  Serious: Yes (Hospitalization, Other)
  Sender: FDA-Public Use
  Company Number: JP-CHUGAI-2022016720

PATIENT
  Age: 74 Year
  Sex: Male
  Weight: 56.7 kg

DRUGS (13)
  1. ATEZOLIZUMAB [Suspect]
     Active Substance: ATEZOLIZUMAB
     Indication: Lung adenocarcinoma
     Dosage: 1200 MILLIGRAM, SINGLE
     Route: 041
     Dates: start: 20220106, end: 20220106
  2. ATEZOLIZUMAB [Suspect]
     Active Substance: ATEZOLIZUMAB
     Dosage: 1200 MILLIGRAM, SINGLE
     Route: 041
     Dates: start: 20220217, end: 20220217
  3. ATEZOLIZUMAB [Suspect]
     Active Substance: ATEZOLIZUMAB
     Dosage: 1200 MILLIGRAM, SINGLE
     Route: 041
     Dates: start: 20220317, end: 20220317
  4. ATEZOLIZUMAB [Suspect]
     Active Substance: ATEZOLIZUMAB
     Dosage: 1200 MILLIGRAM
     Route: 041
     Dates: start: 20220414, end: 20230201
  5. CARBOPLATIN [Suspect]
     Active Substance: CARBOPLATIN
     Indication: Lung adenocarcinoma
     Dosage: 600 MILLIGRAM, SINGLE
     Route: 041
     Dates: start: 20220106, end: 20220106
  6. CARBOPLATIN [Suspect]
     Active Substance: CARBOPLATIN
     Dosage: 430 MILLIGRAM, SINGLE
     Route: 041
     Dates: start: 20220217, end: 20220217
  7. CARBOPLATIN [Suspect]
     Active Substance: CARBOPLATIN
     Dosage: 430 MILLIGRAM, SINGLE
     Route: 041
     Dates: start: 20220317, end: 20220317
  8. CARBOPLATIN [Suspect]
     Active Substance: CARBOPLATIN
     Dosage: 430 MILLIGRAM
     Route: 041
     Dates: start: 20220414, end: 20220414
  9. PACLITAXEL [Suspect]
     Active Substance: PACLITAXEL
     Indication: Lung adenocarcinoma
     Dosage: 160 MILLIGRAM, SINGLE
     Route: 041
     Dates: start: 20220106, end: 20220106
  10. PACLITAXEL [Suspect]
     Active Substance: PACLITAXEL
     Dosage: 150 MILLIGRAM, SINGLE
     Route: 041
     Dates: start: 20220120, end: 20220120
  11. PACLITAXEL [Suspect]
     Active Substance: PACLITAXEL
     Dosage: 160 MILLIGRAM, SINGLE
     Route: 041
     Dates: start: 20220217, end: 20220217
  12. PACLITAXEL [Suspect]
     Active Substance: PACLITAXEL
     Dosage: 160 MILLIGRAM, SINGLE
     Route: 041
     Dates: start: 20220317, end: 20220317
  13. PACLITAXEL [Suspect]
     Active Substance: PACLITAXEL
     Dosage: 160 MILLIGRAM
     Route: 041
     Dates: start: 20220414, end: 20220428

REACTIONS (3)
  - Interstitial lung disease [Recovered/Resolved]
  - Pyelonephritis [Recovered/Resolved]
  - Anaemia [Recovered/Resolved]

NARRATIVE: CASE EVENT DATE: 20220117
